FAERS Safety Report 6695042-X (Version None)
Quarter: 2010Q2

REPORT INFORMATION
  Report Type: 
  Country: None (occurrence: None)
  Receive Date: 20100423
  Receipt Date: 20100415
  Transmission Date: 20101027
  Serious: Yes (Death, Hospitalization)
  Sender: FDA-Public Use
  Company Number: US-ROCHE-698743

PATIENT
  Age: 65 Year
  Sex: Male

DRUGS (2)
  1. BEVACIZUMAB [Suspect]
     Dosage: OVER 30- 90 MINUTES ON DAYS 1 AND 15. CYCLE: 28 DAYS
     Route: 042
     Dates: start: 20100324
  2. TEMSIROLIMUS [Suspect]
     Dosage: ON DAYS 1, 8, 15 AND 22. CYCLE: 28 DAYS
     Route: 042
     Dates: start: 20100324

REACTIONS (5)
  - DEATH [None]
  - METABOLIC ACIDOSIS [None]
  - PERITONITIS [None]
  - RENAL FAILURE [None]
  - RESPIRATORY FAILURE [None]
